FAERS Safety Report 8155805-0 (Version None)
Quarter: 2012Q1

REPORT INFORMATION
  Report Type: 
  Country: None (occurrence: None)
  Receive Date: 20120215
  Receipt Date: 20120111
  Transmission Date: 20120608
  Serious: Yes (Hospitalization)
  Sender: FDA-Public Use
  Company Number: ABR_00353_2012

PATIENT
  Age: 10 Year
  Sex: Female

DRUGS (2)
  1. ERYTHROMYCIN [Suspect]
     Indication: PRODUCT USED FOR UNKNOWN INDICATION
  2. CLARITHROMYCIN [Suspect]
     Indication: TONSILLITIS
     Dosage: DF ORAL
     Route: 048
     Dates: start: 20111212, end: 20111213

REACTIONS (1)
  - PANCREATITIS ACUTE [None]
